FAERS Safety Report 9988760 (Version 4)
Quarter: 2014Q2

REPORT INFORMATION
  Report Type: Report from Study
  Country: NL (occurrence: NL)
  Receive Date: 20140310
  Receipt Date: 20140515
  Transmission Date: 20141212
  Serious: Yes (Death, Hospitalization)
  Sender: FDA-Public Use
  Company Number: NL-ROCHE-1361757

PATIENT
  Age: 54 Year
  Sex: Male

DRUGS (4)
  1. MIRCERA [Suspect]
     Indication: NEPHROGENIC ANAEMIA
     Route: 058
     Dates: start: 20140213
  2. AMLODIPINE [Concomitant]
  3. OMEPRAZOLE [Concomitant]
  4. ETALPHA [Concomitant]

REACTIONS (2)
  - Pancreatic carcinoma [Fatal]
  - Metastasis [Unknown]
